FAERS Safety Report 7438055-2 (Version None)
Quarter: 2011Q2

REPORT INFORMATION
  Report Type: 
  Country: None (occurrence: None)
  Receive Date: 20110426
  Receipt Date: 20110422
  Transmission Date: 20111010
  Serious: Yes (Death, Other)
  Sender: FDA-Public Use
  Company Number: CN-GENZYME-FLUD-1000376

PATIENT
  Sex: Male
  Weight: 58 kg

DRUGS (12)
  1. CYTARABINE [Suspect]
     Indication: ACUTE MYELOID LEUKAEMIA
     Dosage: 2 G/M2, QD
     Route: 065
     Dates: start: 20100722, end: 20100917
  2. NORVANCOMYCIN [Concomitant]
     Indication: PRODUCT USED FOR UNKNOWN INDICATION
     Dosage: 0.4 G, X 2
     Route: 042
     Dates: start: 20100821, end: 20100825
  3. INTERLEUKINS [Concomitant]
     Indication: PRODUCT USED FOR UNKNOWN INDICATION
     Dosage: 3 MG X 1
     Route: 058
     Dates: start: 20100830
  4. INTERFERON, HUMAN LEUCOCYTE [Concomitant]
     Indication: PRODUCT USED FOR UNKNOWN INDICATION
     Dosage: 2 U, TID
     Route: 042
     Dates: start: 20100820, end: 20100830
  5. NEUPOGEN [Concomitant]
     Indication: PRODUCT USED FOR UNKNOWN INDICATION
     Dosage: 150 MCG, X 2
     Route: 042
     Dates: start: 20100824, end: 20100830
  6. CEFEPIME [Concomitant]
     Indication: PRODUCT USED FOR UNKNOWN INDICATION
     Dosage: 1.0 G, X 2
     Route: 042
     Dates: start: 20100821, end: 20100822
  7. MEROPENEM [Concomitant]
     Indication: PRODUCT USED FOR UNKNOWN INDICATION
     Dosage: 0.5 G X 2
     Route: 042
     Dates: start: 20100822, end: 20100830
  8. AMINO ACIDS [Concomitant]
     Indication: PRODUCT USED FOR UNKNOWN INDICATION
     Dosage: 500 ML, QD
     Route: 042
     Dates: start: 20100821, end: 20100822
  9. POTASSIUM CHLORIDE [Concomitant]
     Indication: PRODUCT USED FOR UNKNOWN INDICATION
     Dosage: 15 ML, QD
     Route: 042
     Dates: start: 20100823, end: 20100825
  10. FLUDARA [Suspect]
     Indication: ACUTE MYELOID LEUKAEMIA
     Dosage: 30 MG/M2, QD
     Route: 042
     Dates: start: 20100722, end: 20100917
  11. NEUPOGEN [Suspect]
     Indication: ACUTE MYELOID LEUKAEMIA
     Dosage: 200 MCG/M2, QD
     Route: 065
     Dates: start: 20100722, end: 20100917
  12. MANNATIDE [Concomitant]
     Indication: PRODUCT USED FOR UNKNOWN INDICATION
     Dosage: 20 MG, QD
     Route: 042
     Dates: start: 20100822, end: 20100830

REACTIONS (4)
  - WEIGHT DECREASED [None]
  - BONE MARROW FAILURE [None]
  - LEUKOPENIA [None]
  - DEATH [None]
